FAERS Safety Report 7120552-0 (Version None)
Quarter: 2010Q4

REPORT INFORMATION
  Report Type: 
  Country: None (occurrence: None)
  Receive Date: 20101124
  Receipt Date: 20101117
  Transmission Date: 20110411
  Serious: Yes (Death)
  Sender: FDA-Public Use
  Company Number: VE-PFIZER INC-2010141094

PATIENT
  Age: 83 Year
  Sex: Female

DRUGS (4)
  1. NORVASC [Suspect]
     Indication: HYPERTENSION
     Dosage: 5 MG, 2X/DAY
     Route: 048
     Dates: start: 20100501
  2. GLUCOFAGE [Concomitant]
     Indication: HYPERINSULINISM
     Dosage: 250 MG, UNK
     Route: 048
  3. DAFLON [Concomitant]
     Indication: CARDIOVASCULAR INSUFFICIENCY
     Dosage: 500 MG, 1X/DAY
  4. ASCORBIC ACID [Concomitant]
     Indication: VITAMIN C DEFICIENCY
     Dosage: 500 MG, 1X/DAY
     Route: 048

REACTIONS (1)
  - INFARCTION [None]
